FAERS Safety Report 7918017-9 (Version None)
Quarter: 2011Q4

REPORT INFORMATION
  Report Type: 
  Country: None (occurrence: None)
  Receive Date: 20111116
  Receipt Date: 20111108
  Transmission Date: 20120403
  Serious: Yes (Hospitalization, Other)
  Sender: FDA-Public Use
  Company Number: US-MERCK-1108USA01356

PATIENT
  Age: 71 Year
  Sex: Female
  Weight: 74 kg

DRUGS (2)
  1. ACTONEL [Suspect]
     Route: 065
  2. FOSAMAX [Suspect]
     Indication: OSTEOPOROSIS
     Route: 048
     Dates: start: 19950101, end: 20050101

REACTIONS (18)
  - GALLBLADDER DISORDER [None]
  - HYPERTENSION [None]
  - OSTEOMYELITIS [None]
  - GINGIVAL DISORDER [None]
  - THYROID DISORDER [None]
  - CEREBROVASCULAR ACCIDENT [None]
  - ARTHRITIS [None]
  - GLAUCOMA [None]
  - OSTEONECROSIS OF JAW [None]
  - SKIN CANCER [None]
  - CHEST PAIN [None]
  - CARDIAC MURMUR [None]
  - ABSCESS [None]
  - DEVICE FAILURE [None]
  - ARTHROPATHY [None]
  - TOOTH DISORDER [None]
  - IMPAIRED HEALING [None]
  - HEPATITIS A [None]
